FAERS Safety Report 5266208-0 (Version None)
Quarter: 2007Q1

REPORT INFORMATION
  Report Type: 
  Country: None (occurrence: None)
  Receive Date: 20070315
  Receipt Date: 20070312
  Transmission Date: 20070707
  Serious: Yes (Hospitalization)
  Sender: FDA-Public Use
  Company Number: BR-GLAXOSMITHKLINE-A0642954A

PATIENT
  Age: 38 Year
  Sex: Female
  Weight: 50 kg

DRUGS (2)
  1. SERETIDE [Suspect]
     Indication: BRONCHIECTASIS
     Route: 055
     Dates: start: 20060301
  2. FLIXONASE [Suspect]
     Route: 045
     Dates: start: 20060301

REACTIONS (1)
  - DYSPNOEA [None]
